FAERS Safety Report 14755783 (Version 1)
Quarter: 2018Q2

REPORT INFORMATION
  Report Type: Spontaneous
  Country: US (occurrence: US)
  Receive Date: 20180407
  Receipt Date: 20180407
  Transmission Date: 20180711
  Serious: Yes (Other)
  Sender: FDA-Public Use
  Company Number: None

PATIENT
  Age: 56 Year
  Sex: Female
  Weight: 79.2 kg

DRUGS (4)
  1. HAWTHORN BERRIES [Concomitant]
  2. COQ10 [Concomitant]
     Active Substance: UBIDECARENONE
  3. ASPIRIN. [Concomitant]
     Active Substance: ASPIRIN
  4. AMLODIPINE [Suspect]
     Active Substance: AMLODIPINE BESYLATE
     Indication: HYPERTENSION
     Dosage: ?          QUANTITY:1 TABLET(S);?
     Route: 048
     Dates: start: 20180406, end: 20180407

REACTIONS (6)
  - Diplopia [None]
  - Headache [None]
  - Dizziness [None]
  - Tremor [None]
  - Balance disorder [None]
  - Asthenia [None]

NARRATIVE: CASE EVENT DATE: 20180407
